FAERS Safety Report 16213407 (Version 2)
Quarter: 2019Q2

REPORT INFORMATION
  Report Type: Report from Study
  Country: None (occurrence: US)
  Receive Date: 20190418
  Receipt Date: 20190527
  Transmission Date: 20190711
  Serious: Yes (Other)
  Sender: FDA-Public Use
  Company Number: US-ABBVIE-19K-163-2744403-00

PATIENT
  Age: 93 Year
  Sex: Female
  Weight: 45.4 kg

DRUGS (3)
  1. VITAMIN B12 [Concomitant]
     Active Substance: CYANOCOBALAMIN
     Indication: PRODUCT USED FOR UNKNOWN INDICATION
  2. HUMIRA [Suspect]
     Active Substance: ADALIMUMAB
     Indication: CROHN^S DISEASE
     Route: 058
     Dates: start: 2009
  3. IRON [Concomitant]
     Active Substance: IRON
     Indication: BLOOD COUNT ABNORMAL

REACTIONS (4)
  - Muscle spasms [Recovered/Resolved]
  - Gastrointestinal obstruction [Unknown]
  - Crohn^s disease [Recovered/Resolved]
  - Sinus disorder [Unknown]

NARRATIVE: CASE EVENT DATE: 201811
